FAERS Safety Report 15229754 (Version 2)
Quarter: 2021Q3

REPORT INFORMATION
  Report Type: Spontaneous
  Country: US (occurrence: US)
  Receive Date: 20180802
  Receipt Date: 20210809
  Transmission Date: 20211014
  Serious: Yes (Other)
  Sender: FDA-Public Use
  Company Number: US-ACCORD-062657

PATIENT
  Age: 55 Year
  Sex: Female
  Weight: 64.41 kg

DRUGS (20)
  1. MELATONIN [Concomitant]
     Active Substance: MELATONIN
     Dosage: STRENGTH: 5 MG?5 MG TABLET 1 TABLET(S) BY MOUTH
     Route: 048
  2. ATIVAN [Concomitant]
     Active Substance: LORAZEPAM
     Dosage: STRENGTH: 1 MG?1 MG TABLET 1 TABLET(S) BY MOUTH
     Route: 048
     Dates: start: 20160901
  3. LIDOCAINE. [Concomitant]
     Active Substance: LIDOCAINE
     Dosage: 2 % MUCOSAL SOLN 5 ML AS DIRECTED QID SWISH, GARGLE, AND SWALLOW BEFORE MEALS AND AT BEDTIME
  4. COUMADIN [Concomitant]
     Active Substance: WARFARIN SODIUM
     Dosage: STRENGTH: 5 MG ?5 MG TABLET 1 BY MOUTH
     Route: 048
     Dates: start: 20121121
  5. LORTAB [Concomitant]
     Active Substance: ACETAMINOPHEN\HYDROCODONE BITARTRATE
     Dosage: 7.5 MG?500 MG TABLET 1 BY MOUTH Q6H
     Route: 048
  6. WELLBUTRIN [Concomitant]
     Active Substance: BUPROPION HYDROCHLORIDE
     Dosage: 150 MG 24 HR TAB?150 MG 24 HR TABLET, EXTENDED RELEASE 1 TABLET(S) BY MOUTH
     Route: 048
     Dates: start: 20090501
  7. DOCETAXEL ACCORD [Suspect]
     Active Substance: DOCETAXEL
     Indication: BREAST CANCER METASTATIC
     Route: 042
     Dates: start: 20120807, end: 20121129
  8. CLONAZEPAM. [Concomitant]
     Active Substance: CLONAZEPAM
     Dosage: STRENGTH: 0.5 MG?0.5 MG TABLET 1 TABLET(S) BY MOUTH
     Route: 048
     Dates: start: 20110908, end: 20160501
  9. COLECALCIFEROL [Concomitant]
     Active Substance: CHOLECALCIFEROL
     Dosage: STRENGTH: 2000 UNIT?2,000 UNIT TABLET 1 TABLET(S) BY MOUTH
     Route: 048
  10. LOVENOX [Concomitant]
     Active Substance: ENOXAPARIN SODIUM
     Dosage: 80 MG/0.8 ML SUB?Q SYRINGE 1 ML AS DIRECTED BID
  11. CYTOXAN [Suspect]
     Active Substance: CYCLOPHOSPHAMIDE
     Indication: BREAST CANCER METASTATIC
     Route: 042
     Dates: start: 20120807, end: 20121129
  12. DOXORUBICIN [Suspect]
     Active Substance: DOXORUBICIN
     Indication: BREAST CANCER METASTATIC
     Route: 042
     Dates: start: 20120807, end: 20121129
  13. DHEA [Concomitant]
     Active Substance: PRASTERONE
     Dosage: STRENGTH: 50 MG?50 MG CAPSULE 1 CAPSULE(S) BY MOUTH 80MG
     Route: 048
     Dates: start: 20090501
  14. DEXAMETHASONE. [Concomitant]
     Active Substance: DEXAMETHASONE
     Dosage: STRENGTH: 4 MG ?4 MG TABLET 2 TABLET(S) BY MOUTH BID
     Route: 048
     Dates: start: 20120718, end: 20121201
  15. PHYTOMENADIONE [Concomitant]
     Active Substance: PHYTONADIONE
     Dosage: STRENGTH: 100 MCG?100 MCG TABLET 1 TABLET(S) BY MOUTH 45 MCG DAILY
     Route: 048
  16. EMLA [Concomitant]
     Active Substance: LIDOCAINE\PRILOCAINE
     Dosage: 2.5 %?2.5 % TOPICAL CREAM?APPLY TO MEDIPORT 1 1/2 HR BEFORE TREATMENT TIME
     Route: 061
  17. FLEXERIL [Concomitant]
     Active Substance: CYCLOBENZAPRINE HYDROCHLORIDE
     Dosage: STRENGTH: 5 MG?5 MG TABLET 1 TABLET(S) BY MOUTH TID
     Route: 048
  18. MSIR [Concomitant]
     Active Substance: MORPHINE SULFATE
     Dosage: STRENGTH: 30 MG ?30 MG CAPSULE 1 BY MOUTH Q4?6H
     Route: 048
  19. ARIMIDEX [Concomitant]
     Active Substance: ANASTROZOLE
     Dosage: STRENGTH: 1 MG?1 MG TABLET 1 TABLET(S) BY MOUTH
     Route: 048
     Dates: start: 20130605, end: 20130705
  20. PROCHLORPERAZINE. [Concomitant]
     Active Substance: PROCHLORPERAZINE
     Indication: NAUSEA
     Dosage: STRENGTH: 10 MG?10 MG TABLET 1 TABLET(S) BY MOUTH Q4?6H.
     Route: 048
     Dates: start: 20120701, end: 20121201

REACTIONS (1)
  - Alopecia [Not Recovered/Not Resolved]

NARRATIVE: CASE EVENT DATE: 20130501
